FAERS Safety Report 6534180-9 (Version None)
Quarter: 2010Q1

REPORT INFORMATION
  Report Type: 
  Country: None (occurrence: None)
  Receive Date: 20100112
  Receipt Date: 20100108
  Transmission Date: 20100710
  Serious: Yes (Life-Threatening, Hospitalization, Other)
  Sender: FDA-Public Use
  Company Number: CA-SANOFI-AVENTIS-200819457GDDC

PATIENT
  Age: 59 Year
  Sex: Male

DRUGS (10)
  1. INSULIN GLARGINE [Suspect]
     Indication: DIABETES MELLITUS
     Dosage: DOSE:39 UNIT(S)
     Route: 058
     Dates: start: 20050322, end: 20081002
  2. OPTIPEN [Suspect]
     Indication: DIABETES MELLITUS
  3. BLINDED THERAPY [Suspect]
     Route: 048
     Dates: start: 20050322
  4. NORVASC [Concomitant]
     Indication: CARDIOVASCULAR EVENT PROPHYLAXIS
     Dates: start: 20050301
  5. LISINOPRIL [Concomitant]
     Indication: CARDIOVASCULAR EVENT PROPHYLAXIS
     Dates: start: 20050301
  6. PLAVIX [Concomitant]
     Indication: CARDIOVASCULAR EVENT PROPHYLAXIS
     Dates: start: 20050301
  7. BISOPROLOL FUMARATE [Concomitant]
     Indication: CARDIOVASCULAR EVENT PROPHYLAXIS
     Dates: start: 20050301
  8. METFORMIN HYDROCHLORIDE [Concomitant]
     Indication: DIABETES MELLITUS
     Dates: start: 20050301
  9. ACETYLSALICYLIC ACID [Concomitant]
     Indication: CARDIOVASCULAR EVENT PROPHYLAXIS
     Dates: start: 20050301
  10. FENOFIBRATE [Concomitant]
     Dates: start: 20050301

REACTIONS (1)
  - HYPOGLYCAEMIC SEIZURE [None]
